FAERS Safety Report 26178946 (Version 1)
Quarter: 2025Q4

REPORT INFORMATION
  Report Type: Spontaneous
  Country: EU (occurrence: EU)
  Receive Date: 20251219
  Receipt Date: 20251219
  Transmission Date: 20260119
  Serious: Yes (Death, Hospitalization, Other)
  Sender: ASPEN
  Company Number: EU-Aspen Pharma Trading Limited-AG-2016-008747

PATIENT

DRUGS (6)
  1. MELPHALAN [Suspect]
     Active Substance: MELPHALAN
     Indication: Bone marrow conditioning regimen
     Dosage: HIGH DOSE
     Route: 065
  2. DEXAMETHASONE [Suspect]
     Active Substance: DEXAMETHASONE
     Indication: Plasma cell myeloma
     Route: 065
  3. VELCADE [Suspect]
     Active Substance: BORTEZOMIB
     Indication: Plasma cell myeloma
     Dosage: UNK
     Route: 065
  4. IMIPENEM AND CILASTATIN [Suspect]
     Active Substance: CILASTATIN SODIUM\IMIPENEM
     Indication: Bone marrow conditioning regimen
     Dosage: UNK
     Route: 065
  5. CLEMASTINE [Suspect]
     Active Substance: CLEMASTINE
     Indication: Anaphylactic reaction
     Dosage: UNK
     Route: 065
  6. PREDNISOLONE [Suspect]
     Active Substance: PREDNISOLONE
     Indication: Anaphylactic reaction
     Dosage: UNK
     Route: 065

REACTIONS (2)
  - Acute respiratory distress syndrome [Fatal]
  - Metapneumovirus infection [Not Recovered/Not Resolved]
